FAERS Safety Report 6644124-7 (Version None)
Quarter: 2010Q1

REPORT INFORMATION
  Report Type: 
  Country: None (occurrence: None)
  Receive Date: 20100322
  Receipt Date: 20100310
  Transmission Date: 20100710
  Serious: Yes (Other)
  Sender: FDA-Public Use
  Company Number: PHHY2009GB54166

PATIENT
  Sex: Male
  Weight: 85 kg

DRUGS (6)
  1. CLOZARIL [Suspect]
     Indication: SCHIZOPHRENIA
     Dosage: 300 MG, BID
     Dates: start: 20090623
  2. CLOZARIL [Suspect]
     Dosage: 825 MG, QD
  3. CLOZARIL [Suspect]
     Dosage: 600MG/DAY (IN 3 DIVIDED DOSE)
  4. ESCITALOPRAM [Concomitant]
     Dosage: 20 MG, QD
  5. HYOSCINE HBR HYT [Concomitant]
     Dosage: 300 MG, BID
  6. SIMVASTATIN [Concomitant]
     Dosage: 40 MG, QD

REACTIONS (6)
  - ANTIPSYCHOTIC DRUG LEVEL INCREASED [None]
  - BLOOD PRESSURE FLUCTUATION [None]
  - ELECTROCARDIOGRAM POOR R-WAVE PROGRESSION [None]
  - ELECTROCARDIOGRAM T WAVE ABNORMAL [None]
  - PSYCHOTIC DISORDER [None]
  - SINUS TACHYCARDIA [None]
